FAERS Safety Report 8474301-4 (Version None)
Quarter: 2012Q2

REPORT INFORMATION
  Report Type: 
  Country: None (occurrence: None)
  Receive Date: 20120628
  Receipt Date: 20120619
  Transmission Date: 20120825
  Serious: Yes (Hospitalization)
  Sender: FDA-Public Use
  Company Number: US-BAYER-2012-062364

PATIENT
  Age: 27 Year
  Sex: Female
  Weight: 76.2 kg

DRUGS (10)
  1. MACROBID [Concomitant]
  2. DIFLUCAN [Concomitant]
     Dosage: 150 MG, UNK
     Route: 048
     Dates: start: 20110510
  3. YAZ [Suspect]
     Indication: CONTRACEPTION
  4. IBUPROFEN [Concomitant]
     Indication: PAIN
  5. XANAX [Concomitant]
  6. ZOLOFT [Concomitant]
     Dosage: 100 MG, DAILY
     Route: 048
  7. ZOLOFT [Concomitant]
  8. METROGEL [Concomitant]
     Dosage: 1 EVERY NIGHT
     Route: 067
     Dates: start: 20110715
  9. YAZ [Suspect]
     Indication: POLYCYSTIC OVARIES
     Dosage: 1 TABLET DAILY
     Dates: end: 20110807
  10. SERTRALINE HYDROCHLORIDE [Concomitant]
     Dosage: 100MG TABS 1 DAILY
     Dates: start: 20110715

REACTIONS (1)
  - PULMONARY EMBOLISM [None]
